FAERS Safety Report 8880472 (Version 1)
Quarter: 2012Q4

REPORT INFORMATION
  Report Type: 
  Country: AU (occurrence: AU)
  Receive Date: 20121101
  Receipt Date: 20121101
  Transmission Date: 20130627
  Serious: Yes (Hospitalization)
  Sender: FDA-Public Use
  Company Number: AU-TEVA-365137ISR

PATIENT
  Sex: Male

DRUGS (4)
  1. MODAFINIL [Suspect]
     Indication: HYPERSOMNIA
     Dosage: 200 Milligram Daily;
     Route: 048
     Dates: start: 20121008, end: 20121017
  2. GABAPENTIN [Concomitant]
  3. TESTOSTERON [Concomitant]
  4. NEXIUM [Concomitant]

REACTIONS (3)
  - Heart rate abnormal [Recovered/Resolved]
  - Atrial fibrillation [Recovered/Resolved]
  - Blood creatine phosphokinase increased [Recovered/Resolved]
